FAERS Safety Report 4746064-7 (Version None)
Quarter: 2005Q3

REPORT INFORMATION
  Report Type: 
  Country: None (occurrence: None)
  Receive Date: 20050816
  Receipt Date: 20030505
  Transmission Date: 20060218
  Serious: Yes (Other)
  Sender: FDA-Public Use
  Company Number: US-AMGEN-US041672

PATIENT
  Sex: Female

DRUGS (15)
  1. ENBREL [Suspect]
     Indication: RHEUMATOID ARTHRITIS
     Route: 058
     Dates: start: 20030128, end: 20030403
  2. METHOTREXATE [Concomitant]
     Route: 048
     Dates: start: 20011001
  3. GLUCOVANCE [Concomitant]
  4. HYDROCHLOROTHIAZIDE [Concomitant]
     Dates: start: 20030201
  5. ACTOS [Concomitant]
  6. PREMARIN [Concomitant]
  7. LIPITOR [Concomitant]
  8. CALCIUM GLUCONATE [Concomitant]
  9. FOLIC ACID [Concomitant]
     Dates: start: 20011001
  10. COZAAR [Concomitant]
  11. LANOXIN [Concomitant]
  12. PREVACID [Concomitant]
  13. ACEBUTOLOL [Concomitant]
  14. LEUCOVORIN CALCIUM [Concomitant]
  15. LEXAPRO [Concomitant]
     Dates: start: 20030401

REACTIONS (2)
  - HYPOAESTHESIA ORAL [None]
  - URTICARIA [None]
